FAERS Safety Report 4958761-9 (Version None)
Quarter: 2006Q1

REPORT INFORMATION
  Report Type: 
  Country: None (occurrence: None)
  Receive Date: 20060127
  Receipt Date: 20050908
  Transmission Date: 20060701
  Serious: Yes (Hospitalization)
  Sender: FDA-Public Use
  Company Number: 2005-US-00065

PATIENT
  Age: 43 Year
  Sex: Female

DRUGS (4)
  1. CLOZAPINE [Suspect]
     Indication: SCHIZOPHRENIA, PARANOID TYPE
     Dosage: ORAL
     Route: 048
     Dates: start: 19991201
  2. CLONIDINE [Concomitant]
  3. ENALAPRIL MALEATE [Concomitant]
  4. LITHIUM [Concomitant]

REACTIONS (2)
  - FALL [None]
  - MYOCLONUS [None]
